FAERS Safety Report 25813209 (Version 1)
Quarter: 2025Q3

REPORT INFORMATION
  Report Type: Spontaneous
  Country: GB (occurrence: GB)
  Receive Date: 20250917
  Receipt Date: 20250917
  Transmission Date: 20251021
  Serious: Yes (Other)
  Sender: PFIZER
  Company Number: None

PATIENT
  Sex: Female

DRUGS (1)
  1. BEVACIZUMAB [Suspect]
     Active Substance: BEVACIZUMAB

REACTIONS (8)
  - Gastrooesophageal reflux disease [Unknown]
  - Fatigue [Unknown]
  - Dyspnoea [Unknown]
  - Abdominal pain [Unknown]
  - Poor quality sleep [Unknown]
  - Emotional distress [Unknown]
  - Pain in extremity [Unknown]
  - Visual impairment [Unknown]

NARRATIVE: CASE EVENT DATE: 20250914
